FAERS Safety Report 8017332-0 (Version None)
Quarter: 2012Q1

REPORT INFORMATION
  Report Type: 
  Country: None (occurrence: None)
  Receive Date: 20120102
  Receipt Date: 20111219
  Transmission Date: 20120608
  Serious: Yes (Death, Hospitalization)
  Sender: FDA-Public Use
  Company Number: US-ROCHE-1019626

PATIENT
  Sex: Female
  Weight: 55 kg

DRUGS (1)
  1. XELODA [Suspect]
     Indication: BREAST CANCER
     Dosage: FORM: NOT REPORTED, ON DAY 1 TO DAY 14 OF A 21 DAYS CYCLE, LAST DOSE PRIOR TO EVENT ON 15 AUGUST 201
     Route: 048
     Dates: start: 20110802, end: 20110815

REACTIONS (2)
  - PNEUMONIA [None]
  - CARDIO-RESPIRATORY ARREST [None]
